FAERS Safety Report 4519352-7 (Version None)
Quarter: 2004Q4

REPORT INFORMATION
  Report Type: 
  Country: None (occurrence: None)
  Receive Date: 20041201
  Receipt Date: 20041117
  Transmission Date: 20050328
  Serious: Yes (Hospitalization)
  Sender: FDA-Public Use
  Company Number: J081-002-001798

PATIENT
  Age: 82 Year
  Sex: Male

DRUGS (5)
  1. ARICEPT [Suspect]
     Indication: DEMENTIA ALZHEIMER'S TYPE
     Dosage: SEE IMAGE
     Route: 048
     Dates: start: 20021207, end: 20021216
  2. ARICEPT [Suspect]
     Indication: DEMENTIA ALZHEIMER'S TYPE
     Dosage: SEE IMAGE
     Route: 048
     Dates: start: 20021217, end: 20041012
  3. BUP-4 (PROPIVERINE HYDROCHLORIDE) [Suspect]
     Indication: URINARY INCONTINENCE
     Dosage: 60 MG, 3 IN 1 D, ORAL
     Route: 048
     Dates: start: 20030401, end: 20041017
  4. AVISHOT (NAFTOPIDIL) [Concomitant]
  5. MAGNESIUM OXIDE (MAGNESIUM OXIDE) [Concomitant]

REACTIONS (18)
  - ASTHENIA [None]
  - BLOOD CREATINE PHOSPHOKINASE INCREASED [None]
  - BRADYKINESIA [None]
  - DIFFICULTY IN WALKING [None]
  - FAECAL INCONTINENCE [None]
  - GAIT DISTURBANCE [None]
  - HALLUCINATION [None]
  - HYPERCREATININAEMIA [None]
  - LUMBAR SPINAL STENOSIS [None]
  - MUSCLE DISORDER [None]
  - NEUROLEPTIC MALIGNANT SYNDROME [None]
  - PAIN IN EXTREMITY [None]
  - PARKINSON'S DISEASE [None]
  - PARKINSONISM [None]
  - POSTURE ABNORMAL [None]
  - PSYCHOTIC DISORDER [None]
  - SPINAL COLUMN STENOSIS [None]
  - URINARY INCONTINENCE [None]
